FAERS Safety Report 6866939-2 (Version None)
Quarter: 2010Q3

REPORT INFORMATION
  Report Type: 
  Country: None (occurrence: None)
  Receive Date: 20100722
  Receipt Date: 20100713
  Transmission Date: 20110219
  Serious: Yes (Hospitalization)
  Sender: FDA-Public Use
  Company Number: GXKR2010IT07743

PATIENT
  Age: 22 Year
  Sex: Male

DRUGS (2)
  1. RISPERIDONE [Suspect]
     Indication: COMPULSIVE SEXUAL BEHAVIOUR
     Dosage: 1 MG/DAY
     Route: 065
  2. RISPERIDONE [Suspect]
     Indication: AGGRESSION

REACTIONS (4)
  - BARRETT'S OESOPHAGUS [None]
  - GASTRODUODENAL ULCER [None]
  - HAEMATEMESIS [None]
  - MELAENA [None]
